FAERS Safety Report 7749518-4 (Version None)
Quarter: 2011Q3

REPORT INFORMATION
  Report Type: 
  Country: None (occurrence: None)
  Receive Date: 20110914
  Receipt Date: 20110830
  Transmission Date: 20111222
  Serious: Yes (Other)
  Sender: FDA-Public Use
  Company Number: PHHY2011BR66810

PATIENT
  Sex: Male

DRUGS (3)
  1. DOMPERIDONE [Concomitant]
     Indication: CONSTIPATION
  2. DIOVAN [Suspect]
     Indication: HYPERTENSION
     Dosage: 160 MG (1 TABLET DAILY)
     Route: 048
     Dates: start: 20090101, end: 20080101
  3. EXFORGE [Suspect]
     Indication: HYPERTENSION
     Dosage: 1 DF, (160/5 MG, 1 TABLET DAILY)
     Route: 048
     Dates: start: 20090101

REACTIONS (5)
  - OSTEOARTHRITIS [None]
  - PAIN [None]
  - ABASIA [None]
  - KNEE DEFORMITY [None]
  - MENISCUS LESION [None]
